FAERS Safety Report 8965538 (Version 1)
Quarter: 2012Q4

REPORT INFORMATION
  Report Type: Spontaneous
  Country: DK (occurrence: None)
  Receive Date: 20121205
  Receipt Date: 20121205
  Transmission Date: 20130627
  Serious: Yes (Disabling)
  Sender: FDA-Public Use
  Company Number: 2012MA013756

PATIENT
  Age: 34 Year
  Sex: Male

DRUGS (5)
  1. NAPROXEN [Suspect]
     Dates: start: 20121031, end: 20121107
  2. BUPRENORPHINE [Concomitant]
  3. DIAZEPAM [Concomitant]
  4. HYOSCINE [Concomitant]
  5. BUTYLBROMIDE [Concomitant]

REACTIONS (1)
  - Hallucinations, mixed [None]
